FAERS Safety Report 4263871-8 (Version None)
Quarter: 2004Q1

REPORT INFORMATION
  Report Type: 
  Country: None (occurrence: None)
  Receive Date: 20040102
  Receipt Date: 20031217
  Transmission Date: 20041129
  Serious: Yes (Other)
  Sender: FDA-Public Use
  Company Number: FR_031203330

PATIENT
  Age: 81 Year
  Sex: Female

DRUGS (3)
  1. FLUOXETINE HCL [Suspect]
     Dosage: 20 MG/DAY    A FEW YEARS
  2. HYDROXYZINE [Concomitant]
  3. HYDROMORPHONE HCL [Concomitant]

REACTIONS (11)
  - DRUG INTERACTION POTENTIATION [None]
  - DYSKINESIA [None]
  - FLUSHING [None]
  - HYPERHIDROSIS [None]
  - INCOHERENT [None]
  - INTERVERTEBRAL DISC DISORDER [None]
  - MYOCLONUS [None]
  - PAIN [None]
  - SEROTONIN SYNDROME [None]
  - SOMNOLENCE [None]
  - TREMOR [None]
